FAERS Safety Report 7139532-4 (Version None)
Quarter: 2010Q4

REPORT INFORMATION
  Report Type: 
  Country: None (occurrence: None)
  Receive Date: 20101206
  Receipt Date: 20101122
  Transmission Date: 20110411
  Serious: Yes (Hospitalization, Other)
  Sender: FDA-Public Use
  Company Number: US-RB-017079-10

PATIENT
  Age: 63 Year
  Sex: Male

DRUGS (2)
  1. SUBOXONE [Suspect]
     Indication: PRODUCT USED FOR UNKNOWN INDICATION
     Dosage: DOSING INFORMATION UNKNOWN / SUBLINGUAL FILM
     Route: 065
  2. COUMADIN [Suspect]
     Indication: PRODUCT USED FOR UNKNOWN INDICATION
     Dosage: DOSAGE UNKNOWN AT THIS TIME.

REACTIONS (8)
  - ANTICOAGULATION DRUG LEVEL ABOVE THERAPEUTIC [None]
  - ANTICOAGULATION DRUG LEVEL BELOW THERAPEUTIC [None]
  - BACK PAIN [None]
  - CONDITION AGGRAVATED [None]
  - MUSCULOSKELETAL PAIN [None]
  - NECK PAIN [None]
  - NERVOUSNESS [None]
  - OEDEMA PERIPHERAL [None]
